FAERS Safety Report 8455393-5 (Version None)
Quarter: 2012Q2

REPORT INFORMATION
  Report Type: 
  Country: None (occurrence: None)
  Receive Date: 20120621
  Receipt Date: 20120612
  Transmission Date: 20120825
  Serious: Yes (Hospitalization, Other)
  Sender: FDA-Public Use
  Company Number: US-BRISTOL-MYERS SQUIBB COMPANY-16336968

PATIENT
  Age: 20 Year
  Sex: Female
  Weight: 60 kg

DRUGS (11)
  1. DIPHENHYDRAMINE HCL [Concomitant]
  2. METHYLPHENIDATE [Concomitant]
  3. DICLOFENAC SODIUM [Concomitant]
  4. NEOCON [Concomitant]
  5. IPILIMUMAB [Suspect]
     Indication: NEOPLASM
     Dosage: LAST DOSE: 22DEC2011
     Route: 042
     Dates: start: 20111130
  6. IBUPROFEN [Concomitant]
  7. BACTROBAN [Concomitant]
  8. METAMUCIL-2 [Concomitant]
  9. NEURONTIN [Concomitant]
  10. LORAZEPAM [Concomitant]
  11. ACETAMINOPHEN [Concomitant]

REACTIONS (4)
  - COLITIS [None]
  - LARGE INTESTINE PERFORATION [None]
  - AUTOIMMUNE HEPATITIS [None]
  - SKIN INFECTION [None]
